FAERS Safety Report 15413414 (Version 1)
Quarter: 2018Q3

REPORT INFORMATION
  Report Type: Spontaneous
  Country: US (occurrence: US)
  Receive Date: 20180921
  Receipt Date: 20180921
  Transmission Date: 20181010
  Serious: Yes (Hospitalization, Other)
  Sender: FDA-Public Use
  Company Number: PHEH2018US037494

PATIENT
  Age: 16 Year
  Sex: Male
  Weight: 46 kg

DRUGS (1)
  1. KYMRIAH [Suspect]
     Active Substance: TISAGENLECLEUCEL
     Indication: ACUTE LYMPHOCYTIC LEUKAEMIA
     Dosage: 12 ML, ONCE/SINGLE
     Route: 042
     Dates: start: 20180806, end: 20180810

REACTIONS (6)
  - Escherichia infection [Recovered/Resolved]
  - Diarrhoea [Recovered/Resolved]
  - Therapy non-responder [Recovered/Resolved]
  - Hypotension [Recovered/Resolved]
  - Pyrexia [Recovered/Resolved]
  - Cytokine release syndrome [Recovered/Resolved]

NARRATIVE: CASE EVENT DATE: 20180806
